FAERS Safety Report 14239266 (Version 1)
Quarter: 2017Q4

REPORT INFORMATION
  Report Type: Spontaneous
  Country: US (occurrence: US)
  Receive Date: 20171127
  Receipt Date: 20171127
  Transmission Date: 20180321
  Serious: Yes (Other)
  Sender: FDA-Public Use
  Company Number: None

PATIENT
  Age: 38 Year
  Sex: Female
  Weight: 53.1 kg

DRUGS (5)
  1. COLD AND FLU DAY TIME MULTI-SYMPTOM RELIEF [Suspect]
     Active Substance: ACETAMINOPHEN\DEXTROMETHORPHAN HYDROBROMIDE\PHENYLEPHRINE HYDROCHLORIDE
     Indication: NASAL CONGESTION
     Dosage: ?          QUANTITY:2 TABLESPOON(S);?
     Route: 048
     Dates: start: 20171124, end: 20171125
  2. COLD AND FLU DAY TIME MULTI-SYMPTOM RELIEF [Suspect]
     Active Substance: ACETAMINOPHEN\DEXTROMETHORPHAN HYDROBROMIDE\PHENYLEPHRINE HYDROCHLORIDE
     Indication: COUGH
     Dosage: ?          QUANTITY:2 TABLESPOON(S);?
     Route: 048
     Dates: start: 20171124, end: 20171125
  3. L-GLUTAMINE /00503401/ [Concomitant]
     Active Substance: GLUTAMINE
  4. DAILY VITAMIN [Concomitant]
     Active Substance: VITAMINS
  5. PROBIOTICS [Concomitant]
     Active Substance: PROBIOTICS NOS

REACTIONS (5)
  - Vomiting [None]
  - Dizziness [None]
  - Nausea [None]
  - Pruritus [None]
  - Hypophagia [None]

NARRATIVE: CASE EVENT DATE: 20171124
